FAERS Safety Report 15053305 (Version 2)
Quarter: 2018Q3

REPORT INFORMATION
  Report Type: Spontaneous
  Country: GB (occurrence: GB)
  Receive Date: 20180622
  Receipt Date: 20180827
  Transmission Date: 20181010
  Serious: Yes (Hospitalization)
  Sender: FDA-Public Use
  Company Number: GB-TEVA-2018-GB-913109

PATIENT
  Age: 77 Year
  Sex: Female

DRUGS (18)
  1. TIMOLOL. [Concomitant]
     Active Substance: TIMOLOL
     Route: 050
  2. LANSOPRAZOLE. [Concomitant]
     Active Substance: LANSOPRAZOLE
  3. BUMETANIDE. [Suspect]
     Active Substance: BUMETANIDE
     Dosage: .5 MILLIGRAM DAILY; IN THE MORNING.
     Route: 048
     Dates: end: 20180504
  4. QVAR [Concomitant]
     Active Substance: BECLOMETHASONE DIPROPIONATE
  5. AMITRIPTYLINE [Concomitant]
     Active Substance: AMITRIPTYLINE
  6. GABAPENTIN. [Concomitant]
     Active Substance: GABAPENTIN
  7. ALLOPURINOL. [Concomitant]
     Active Substance: ALLOPURINOL
  8. DILTIAZEM. [Concomitant]
     Active Substance: DILTIAZEM
  9. AIROMIR [Concomitant]
     Active Substance: ALBUTEROL SULFATE
  10. SIMVASTATIN. [Concomitant]
     Active Substance: SIMVASTATIN
  11. DICLOFENAC [Concomitant]
     Active Substance: DICLOFENAC
  12. COCODAMOL [Concomitant]
     Active Substance: ACETAMINOPHEN\CODEINE PHOSPHATE
     Dosage: 8MG/500MG
  13. SPIRONOLACTONE. [Suspect]
     Active Substance: SPIRONOLACTONE
     Dosage: 25 MILLIGRAM DAILY; IN THE MORNING.
     Route: 048
     Dates: end: 20180504
  14. NITROMIN [Concomitant]
  15. CASSIA [Concomitant]
  16. DOCUSATE [Concomitant]
     Active Substance: DOCUSATE
  17. CLOTRIMAZOLE. [Concomitant]
     Active Substance: CLOTRIMAZOLE
  18. LACTULOSE. [Concomitant]
     Active Substance: LACTULOSE
     Dosage: 3.1?3.7G/5ML
     Route: 048

REACTIONS (4)
  - Dehydration [Recovered/Resolved]
  - Renal impairment [Unknown]
  - Orthostatic hypotension [Recovered/Resolved]
  - Syncope [Unknown]
